FAERS Safety Report 9456634 (Version 1)
Quarter: 2013Q3

REPORT INFORMATION
  Report Type: Spontaneous
  Country: FR (occurrence: FR)
  Receive Date: 20130813
  Receipt Date: 20130813
  Transmission Date: 20140515
  Serious: Yes (Hospitalization, Other)
  Sender: FDA-Public Use
  Company Number: FR-TEVA-422790ISR

PATIENT
  Age: 53 Year
  Sex: Female

DRUGS (4)
  1. ESTREVA [Suspect]
     Indication: HIRSUTISM
     Dosage: 2 DOSAGE FORMS DAILY;
     Route: 062
  2. ZYPREXA [Suspect]
     Indication: BIPOLAR DISORDER
     Dosage: 15 MILLIGRAM DAILY;
     Route: 048
     Dates: start: 2012, end: 20130502
  3. ANDROCUR [Suspect]
     Indication: HIRSUTISM
     Dosage: .5 DOSAGE FORMS DAILY;
     Route: 048
     Dates: start: 2006, end: 20130504
  4. LEPTICUR 10 MG [Concomitant]
     Indication: BIPOLAR DISORDER
     Dosage: 1 DOSAGE FORMS DAILY;
     Route: 048

REACTIONS (4)
  - Pulmonary embolism [Recovered/Resolved]
  - Agranulocytosis [Unknown]
  - Cough [Recovering/Resolving]
  - Dyspnoea [Recovering/Resolving]
